FAERS Safety Report 4436736-6 (Version None)
Quarter: 2004Q3

REPORT INFORMATION
  Report Type: 
  Country: None (occurrence: None)
  Receive Date: 20040728
  Receipt Date: 20030918
  Transmission Date: 20050211
  Serious: Yes (Other)
  Sender: FDA-Public Use
  Company Number: 202313

PATIENT
  Age: 68 Year
  Sex: Male
  Weight: 116.6 kg

DRUGS (4)
  1. RITUXAN [Suspect]
     Indication: NON-HODGKIN'S LYMPHOMA
     Dosage: 900 MG, 1/WEEK, INTRAVENOUS; 375 MG/M2, INTRAVENOUS
     Route: 042
     Dates: start: 20030201, end: 20030101
  2. RITUXAN [Suspect]
     Indication: NON-HODGKIN'S LYMPHOMA
     Dosage: 900 MG, 1/WEEK, INTRAVENOUS; 375 MG/M2, INTRAVENOUS
     Route: 042
     Dates: start: 20030818
  3. CHOP COMBINATION CHEMOTHERAPY (PREDNISONE, CYCLOPHOSPHAMIDE, VINCRISTI [Suspect]
     Indication: NON-HODGKIN'S LYMPHOMA
     Dosage: INTRAVENOUS
     Route: 042
     Dates: start: 20030201
  4. ALLOPURINOL [Concomitant]

REACTIONS (1)
  - RASH [None]
